FAERS Safety Report 11078958 (Version 1)
Quarter: 2015Q2

REPORT INFORMATION
  Report Type: Spontaneous
  Country: None (occurrence: None)
  Receive Date: 20150429
  Receipt Date: 20150429
  Transmission Date: 20150821
  Serious: Yes (Other)
  Sender: FDA-Public Use
  Company Number: None

PATIENT
  Age: 68 Year
  Sex: Male

DRUGS (1)
  1. DOXAZOSIN [Suspect]
     Active Substance: DOXAZOSIN\DOXAZOSIN MESYLATE
     Indication: PROSTATIC DISORDER
     Dosage: BEDTIME
     Route: 048
     Dates: start: 20150417

REACTIONS (3)
  - Product quality issue [None]
  - Dizziness [None]
  - Somnolence [None]

NARRATIVE: CASE EVENT DATE: 20150417
